FAERS Safety Report 18285365 (Version 1)
Quarter: 2020Q3

REPORT INFORMATION
  Report Type: Spontaneous
  Country: US (occurrence: US)
  Receive Date: 20200918
  Receipt Date: 20200918
  Transmission Date: 20201103
  Serious: Yes (Other)
  Sender: FDA-Public Use
  Company Number: US-SA-2020SA249598

PATIENT

DRUGS (4)
  1. LANTUS [Suspect]
     Active Substance: INSULIN GLARGINE
     Dosage: UNK, BID
  2. LANTUS [Suspect]
     Active Substance: INSULIN GLARGINE
     Dosage: AT NIGHT HER DOSE HAS BEEN CUT BACK TO 15 UNITS
     Route: 065
  3. NOVOLOG [Concomitant]
     Active Substance: INSULIN ASPART
     Dosage: UNK
     Route: 065
  4. LANTUS [Suspect]
     Active Substance: INSULIN GLARGINE
     Indication: TYPE 2 DIABETES MELLITUS
     Dosage: 20?26 UNITS AS NEEDED
     Route: 065

REACTIONS (4)
  - Leukaemia [Unknown]
  - Blood glucose decreased [Unknown]
  - Inappropriate schedule of product administration [Unknown]
  - Road traffic accident [Unknown]

NARRATIVE: CASE EVENT DATE: 202009
